FAERS Safety Report 21250144 (Version 1)
Quarter: 2022Q3

REPORT INFORMATION
  Report Type: Spontaneous
  Country: US (occurrence: None)
  Receive Date: 20220817
  Receipt Date: 20220817
  Transmission Date: 20221027
  Serious: Yes (Death, Life-Threatening, Hospitalization, Disabling)
  Sender: FDA-Public Use
  Company Number: None

PATIENT
  Sex: Male

DRUGS (1)
  1. GABAPENTIN [Suspect]
     Active Substance: GABAPENTIN
     Dosage: FREQUENCY : TWICE A DAY;?
     Route: 048

REACTIONS (23)
  - Aortic aneurysm [None]
  - Cardiac arrest [None]
  - Cardiac arrest [None]
  - Ventricular extrasystoles [None]
  - Retroperitoneal haemorrhage [None]
  - Post procedural complication [None]
  - Seizure [None]
  - Loss of consciousness [None]
  - Pulseless electrical activity [None]
  - Blood pressure increased [None]
  - Flank pain [None]
  - Dyspnoea [None]
  - Anxiety [None]
  - Hyperhidrosis [None]
  - Constipation [None]
  - Acute respiratory failure [None]
  - Hypotension [None]
  - Haemoglobin decreased [None]
  - Haematocrit decreased [None]
  - Aortic thrombosis [None]
  - Peripheral artery thrombosis [None]
  - Renal artery stenosis [None]
  - Atrophy [None]
